FAERS Safety Report 9949807 (Version 1)
Quarter: 2014Q1

REPORT INFORMATION
  Report Type: Report from Study
  Country: US (occurrence: US)
  Receive Date: 20140304
  Receipt Date: 20140304
  Transmission Date: 20141002
  Serious: No
  Sender: FDA-Public Use
  Company Number: US-ABBVIE-13P-163-1069129-00

PATIENT
  Age: 70 Year
  Sex: Male
  Weight: 60.38 kg

DRUGS (1)
  1. HUMIRA [Suspect]
     Indication: RHEUMATOID ARTHRITIS
     Dates: start: 201209

REACTIONS (2)
  - Rhinorrhoea [Not Recovered/Not Resolved]
  - Cough [Recovered/Resolved]
